FAERS Safety Report 17499464 (Version 1)
Quarter: 2020Q1

REPORT INFORMATION
  Report Type: Spontaneous
  Country: US (occurrence: US)
  Receive Date: 20200305
  Receipt Date: 20200305
  Transmission Date: 20200409
  Serious: No
  Sender: FDA-Public Use
  Company Number: US-ELI_LILLY_AND_COMPANY-US202003000488

PATIENT
  Sex: Female

DRUGS (5)
  1. HUMALOG [Suspect]
     Active Substance: INSULIN LISPRO
     Indication: PRODUCT USED FOR UNKNOWN INDICATION
     Dosage: UNK UNK, UNKNOWN
     Route: 065
  2. HUMALOG JUNIOR KWIKPEN [Suspect]
     Active Substance: INSULIN LISPRO
     Indication: PRODUCT USED FOR UNKNOWN INDICATION
     Dosage: 16 U, PRN (12,14 OR 16 UNITS TYPICALLY 14, 3 TIMES A DAY)
     Route: 065
  3. HUMALOG JUNIOR KWIKPEN [Suspect]
     Active Substance: INSULIN LISPRO
     Dosage: 16 U, PRN (12,14 OR 16 UNITS TYPICALLY 14, 3 TIMES A DAY)
     Route: 065
  4. HUMALOG JUNIOR KWIKPEN [Suspect]
     Active Substance: INSULIN LISPRO
     Indication: PRODUCT USED FOR UNKNOWN INDICATION
     Dosage: 16 U, PRN (12,14 OR 16 UNITS TYPICALLY 14, 3 TIMES A DAY)
     Route: 065
  5. HUMALOG JUNIOR KWIKPEN [Suspect]
     Active Substance: INSULIN LISPRO
     Dosage: 16 U, PRN (12,14 OR 16 UNITS TYPICALLY 14, 3 TIMES A DAY)
     Route: 065

REACTIONS (2)
  - Incorrect dose administered [Unknown]
  - Visual impairment [Unknown]
